FAERS Safety Report 11236203 (Version 12)
Quarter: 2015Q4

REPORT INFORMATION
  Report Type: Spontaneous
  Country: US (occurrence: US)
  Receive Date: 20150702
  Receipt Date: 20151116
  Transmission Date: 20160304
  Serious: Yes (Hospitalization)
  Sender: FDA-Public Use
  Company Number: US-ACTELION-A-NJ2015-118884

PATIENT
  Age: 41 Year
  Sex: Female

DRUGS (7)
  1. VENTAVIS [Suspect]
     Active Substance: ILOPROST
     Dosage: 5 MCG, 6-9X/DAY
     Route: 055
  2. TYVASO [Concomitant]
     Active Substance: TREPROSTINIL
  3. VENTAVIS [Suspect]
     Active Substance: ILOPROST
     Dosage: 2.5 MCG, UNK
     Route: 055
  4. VENTAVIS [Suspect]
     Active Substance: ILOPROST
     Indication: PULMONARY ARTERIAL HYPERTENSION
     Dosage: 5 MCG, 6-9 TIMES DAILY
     Route: 055
     Dates: start: 20150511
  5. OPSUMIT [Suspect]
     Active Substance: MACITENTAN
     Indication: PULMONARY ARTERIAL HYPERTENSION
     Dosage: 10 MG, QD
     Route: 048
     Dates: start: 20150505
  6. ADCIRCA [Concomitant]
     Active Substance: TADALAFIL
  7. VENTAVIS [Suspect]
     Active Substance: ILOPROST
     Dosage: 5 MCG, 3 TIMES DAILY
     Route: 055

REACTIONS (41)
  - Weight increased [Unknown]
  - Dysphonia [Unknown]
  - Loss of consciousness [Unknown]
  - Generalised oedema [Recovered/Resolved]
  - Formication [Unknown]
  - Dry mouth [Unknown]
  - Nasal dryness [Unknown]
  - Ascites [Unknown]
  - Flushing [Unknown]
  - Syncope [Unknown]
  - Cough [Unknown]
  - Aspartate aminotransferase increased [Recovering/Resolving]
  - Cardiac murmur [Unknown]
  - Decreased appetite [Unknown]
  - Pulmonary arterial hypertension [Unknown]
  - Chest discomfort [Unknown]
  - Weight decreased [Unknown]
  - Vertigo [Unknown]
  - Panic attack [Unknown]
  - Oedema peripheral [Unknown]
  - Hypotension [Unknown]
  - Condition aggravated [Unknown]
  - Fluid retention [Unknown]
  - Diarrhoea [Unknown]
  - Vitreous floaters [Unknown]
  - Insomnia [Unknown]
  - Exercise tolerance decreased [Unknown]
  - Oedema [Unknown]
  - Fatigue [Unknown]
  - Headache [Unknown]
  - Pain in jaw [Unknown]
  - Nausea [Recovering/Resolving]
  - Vomiting [Unknown]
  - Head injury [Unknown]
  - Dizziness [Unknown]
  - Dyspnoea [Unknown]
  - Anaemia [Unknown]
  - Bronchitis [Unknown]
  - Pruritus generalised [Unknown]
  - Eye contusion [Unknown]
  - Aptyalism [Unknown]

NARRATIVE: CASE EVENT DATE: 20150808
